FAERS Safety Report 8429430-8 (Version None)
Quarter: 2012Q2

REPORT INFORMATION
  Report Type: 
  Country: None (occurrence: None)
  Receive Date: 20120612
  Receipt Date: 20120606
  Transmission Date: 20120825
  Serious: Yes (Other)
  Sender: FDA-Public Use
  Company Number: AR-AMGEN-ARGCT2012024966

PATIENT
  Age: 78 Year
  Sex: Female

DRUGS (2)
  1. DENOSUMAB [Suspect]
     Indication: OSTEOPOROSIS POSTMENOPAUSAL
     Dosage: 60 MG, Q6MO
     Route: 058
     Dates: start: 20080422, end: 20111005
  2. AMOXICILLIN [Concomitant]
     Dosage: 1 G, Q12H
     Dates: start: 20111201, end: 20120213

REACTIONS (1)
  - NECK MASS [None]
